FAERS Safety Report 11249201 (Version 3)
Quarter: 2015Q3

REPORT INFORMATION
  Report Type: Spontaneous
  Country: FR (occurrence: FR)
  Receive Date: 20150708
  Receipt Date: 20150724
  Transmission Date: 20151125
  Serious: Yes (Hospitalization)
  Sender: FDA-Public Use
  Company Number: FR-OTSUKA-DJ201502840

PATIENT

DRUGS (1)
  1. ARIPIPRAZOLE. [Suspect]
     Active Substance: ARIPIPRAZOLE
     Indication: PSYCHOTIC DISORDER
     Dosage: 20 MG, UNK
     Route: 048

REACTIONS (4)
  - Psychotic disorder [Unknown]
  - Liver disorder [Unknown]
  - Off label use [Unknown]
  - Affective disorder [Unknown]

NARRATIVE: CASE EVENT DATE: 201503
